FAERS Safety Report 7405084-4 (Version None)
Quarter: 2011Q1

REPORT INFORMATION
  Report Type: 
  Country: None (occurrence: None)
  Receive Date: 20110331
  Receipt Date: 20110111
  Transmission Date: 20110831
  Serious: Yes (Hospitalization)
  Sender: FDA-Public Use
  Company Number: 2011MA002864

PATIENT
  Age: 70 Year
  Sex: Male

DRUGS (7)
  1. CARBOPLATIN [Concomitant]
  2. SIMVASTATIN [Concomitant]
  3. ACETYLSALICYLIC ACID SRT [Concomitant]
  4. BELINOSTAT [Concomitant]
  5. ATENOLOL [Concomitant]
  6. PACLITAXEL [Suspect]
     Indication: NEOPLASM MALIGNANT
     Dosage: 294 MG; XI; IV
     Route: 042
     Dates: start: 20110107, end: 20110107
  7. TRADOLAN RETARD [Concomitant]

REACTIONS (7)
  - BRADYCARDIA [None]
  - SYNCOPE [None]
  - CYANOSIS [None]
  - FLUSHING [None]
  - INFUSION RELATED REACTION [None]
  - ABDOMINAL PAIN [None]
  - FALL [None]
